FAERS Safety Report 9783036 (Version 1)
Quarter: 2013Q4

REPORT INFORMATION
  Report Type: Spontaneous
  Country: US (occurrence: None)
  Receive Date: 20131223
  Receipt Date: 20131223
  Transmission Date: 20140711
  Serious: Yes (Other)
  Sender: FDA-Public Use
  Company Number: EUS-2011-00796

PATIENT
  Age: 15 Year
  Sex: Male

DRUGS (6)
  1. ERWINASE (ASPARAGINASE) [Suspect]
     Indication: ACUTE LYMPHOCYTIC LEUKAEMIA
     Route: 030
     Dates: start: 20080716
  2. METHOTREXATE [Concomitant]
  3. CYARTARBINE [Concomitant]
  4. VINCRISTINE [Concomitant]
  5. PREDNISONE [Concomitant]
  6. DEXAMETHASONE [Concomitant]

REACTIONS (1)
  - Hypersensitivity [None]
